FAERS Safety Report 18832897 (Version 1)
Quarter: 2021Q1

REPORT INFORMATION
  Report Type: Spontaneous
  Country: DE (occurrence: DE)
  Receive Date: 20210203
  Receipt Date: 20210203
  Transmission Date: 20210419
  Serious: Yes (Hospitalization, Other)
  Sender: FDA-Public Use
  Company Number: DE-AUROBINDO-AUR-APL-2021-004290

PATIENT
  Age: 17 Year
  Sex: Male
  Weight: 37 kg

DRUGS (4)
  1. BACLOFEN. [Concomitant]
     Active Substance: BACLOFEN
     Indication: MUSCLE SPASTICITY
     Dosage: 2 DOSAGE FORM, ONCE A DAY (DAILY DOSE: 2 DF DOSAGE FORM EVERY DAYS 2 SEPARATED DOSES)
     Route: 050
  2. INOVELON [Suspect]
     Active Substance: RUFINAMIDE
     Indication: EPILEPSY
     Dosage: UNK (480?0?480)
     Route: 050
  3. LEVETIRACETAM 1000MG FILM?COATED TABLETS [Suspect]
     Active Substance: LEVETIRACETAM
     Indication: EPILEPSY
     Dosage: 3 DOSAGE FORM, ONCE A DAY (DAILY DOSE: 3 DF DOSAGE FORM EVERY DAYS 2 SEPARATED DOSES)
     Route: 050
  4. APYDAN EXTENT [Suspect]
     Active Substance: OXCARBAZEPINE
     Indication: EPILEPSY
     Dosage: 750 MILLIGRAM, TWO TIMES A DAY (750?0?750)
     Route: 050

REACTIONS (1)
  - Status epilepticus [Unknown]

NARRATIVE: CASE EVENT DATE: 20200225
